FAERS Safety Report 18242805 (Version 1)
Quarter: 2020Q3

REPORT INFORMATION
  Report Type: Spontaneous
  Country: US (occurrence: US)
  Receive Date: 20200908
  Receipt Date: 20200908
  Transmission Date: 20201103
  Serious: No
  Sender: FDA-Public Use
  Company Number: US-TARO-2019TAR00823

PATIENT
  Sex: Male
  Weight: 86.17 kg

DRUGS (12)
  1. BABY ASPIRIN [Concomitant]
     Active Substance: ASPIRIN
  2. POTASSIUM [Concomitant]
     Active Substance: POTASSIUM
  3. WARFARIN SODIUM TABLETS USP 1MG [Suspect]
     Active Substance: WARFARIN SODIUM
     Indication: CARDIAC DISORDER
     Dosage: 3 MG, UP TO 3X/WEEK (CYCLE: 3 MG, 2.5 MG, 2.5 MG, REPEAT)
  4. WARFARIN SODIUM TABLETS USP 1MG [Suspect]
     Active Substance: WARFARIN SODIUM
     Dosage: 0.5 MG, AS NEEDED
  5. WARFARIN SODIUM TABLETS USP 1MG [Suspect]
     Active Substance: WARFARIN SODIUM
     Dosage: UNK
     Route: 048
  6. WARFARIN SODIUM TABLETS USP 1MG [Suspect]
     Active Substance: WARFARIN SODIUM
     Dosage: 4 TABLETS
     Route: 048
     Dates: end: 2006
  7. WARFARIN SODIUM TABLETS USP 1MG [Suspect]
     Active Substance: WARFARIN SODIUM
     Dosage: 0.5 MG, AS NEEDED
     Route: 048
  8. ATORVASTATIN [Concomitant]
     Active Substance: ATORVASTATIN
  9. WARFARIN SODIUM TABLETS USP 1MG [Suspect]
     Active Substance: WARFARIN SODIUM
     Dosage: 2.5 MG, UP TO 5X/WEEK (CYCLE: 3 MG, 2.5 MG, 2.5 MG, REPEAT)
  10. WARFARIN SODIUM TABLETS USP 1MG [Suspect]
     Active Substance: WARFARIN SODIUM
     Dosage: 3 MG (CYCLE: 3 MG, 2.5 MG, 2.5 MG, REPEAT) (MON, THUR, SUN)
     Route: 048
  11. WARFARIN SODIUM TABLETS USP 1MG [Suspect]
     Active Substance: WARFARIN SODIUM
     Dosage: 2.5 MG (CYCLE: 3 MG, 2.5 MG, 2.5 MG, REPEAT) (TUES, WED, FRI, SAT)
     Route: 048
  12. METOPROLOL. [Concomitant]
     Active Substance: METOPROLOL

REACTIONS (4)
  - International normalised ratio increased [Unknown]
  - Off label use [Not Recovered/Not Resolved]
  - International normalised ratio increased [Recovered/Resolved]
  - Product quality issue [Not Recovered/Not Resolved]

NARRATIVE: CASE EVENT DATE: 2006
